FAERS Safety Report 5226302-7 (Version None)
Quarter: 2007Q1

REPORT INFORMATION
  Report Type: 
  Country: None (occurrence: None)
  Receive Date: 20070201
  Receipt Date: 20070124
  Transmission Date: 20070707
  Serious: Yes (Hospitalization)
  Sender: FDA-Public Use
  Company Number: US-ELI_LILLY_AND_COMPANY-US200608005694

PATIENT
  Sex: Male
  Weight: 108.84 kg

DRUGS (1)
  1. ZYPREXA [Suspect]
     Indication: DEPRESSION

REACTIONS (2)
  - CATHETERISATION CARDIAC [None]
  - DIABETES MELLITUS [None]
